FAERS Safety Report 20461252 (Version 2)
Quarter: 2022Q1

REPORT INFORMATION
  Report Type: Spontaneous
  Country: JP (occurrence: JP)
  Receive Date: 20220211
  Receipt Date: 20220304
  Transmission Date: 20220423
  Serious: Yes (Death, Other)
  Sender: FDA-Public Use
  Company Number: JP-BoehringerIngelheim-2022-BI-152887

PATIENT
  Age: 68 Year
  Sex: Male

DRUGS (1)
  1. GILOTRIF [Suspect]
     Active Substance: AFATINIB
     Indication: Neoplasm
     Route: 065

REACTIONS (2)
  - Metastases to meninges [Fatal]
  - Malignant neoplasm progression [Fatal]
